FAERS Safety Report 5385247-2 (Version None)
Quarter: 2007Q3

REPORT INFORMATION
  Report Type: 
  Country: None (occurrence: None)
  Receive Date: 20070709
  Receipt Date: 20070709
  Transmission Date: 20080115
  Serious: Yes (Hospitalization)
  Sender: FDA-Public Use
  Company Number: None

PATIENT
  Sex: Male
  Weight: 108 kg

DRUGS (9)
  1. TEMOZOLOMIDE [Suspect]
     Dosage: 4760 MG
  2. CLEXANE [Concomitant]
  3. DEXACORT [Concomitant]
  4. ENOLADEX [Concomitant]
  5. NORMITEN [Concomitant]
  6. RESPRIM [Concomitant]
  7. SIMOVIL [Concomitant]
  8. TEGRETOL [Concomitant]
  9. ZENTAC [Concomitant]

REACTIONS (4)
  - DRUG HYPERSENSITIVITY [None]
  - HYPERSENSITIVITY [None]
  - PYREXIA [None]
  - RASH GENERALISED [None]
